FAERS Safety Report 5028036-0 (Version None)
Quarter: 2006Q2

REPORT INFORMATION
  Report Type: 
  Country: None (occurrence: None)
  Receive Date: 20060613
  Receipt Date: 20060604
  Transmission Date: 20061013
  Serious: Yes (Hospitalization)
  Sender: FDA-Public Use
  Company Number: 200613444BWH

PATIENT
  Age: 57 Year
  Sex: Female

DRUGS (9)
  1. NEXAVAR [Suspect]
     Indication: RENAL MASS
     Dosage: 400 MG, BID, ORAL
     Route: 048
     Dates: start: 20060328, end: 20060517
  2. TAXOTERE [Concomitant]
  3. HYDROCHLOROTHIAZIDE [Concomitant]
  4. VICODIN [Concomitant]
  5. BENICAR [Concomitant]
  6. TOPAMAX [Concomitant]
  7. CELEBREX [Concomitant]
  8. PROTONIX [Concomitant]
  9. VYTORIN [Concomitant]

REACTIONS (12)
  - ARTHRALGIA [None]
  - BLISTER [None]
  - BURNING SENSATION [None]
  - DYSPHAGIA [None]
  - FACIAL PAIN [None]
  - HYPERKERATOSIS [None]
  - HYPOKALAEMIA [None]
  - ORAL INTAKE REDUCED [None]
  - PAIN IN EXTREMITY [None]
  - SKIN EXFOLIATION [None]
  - SKIN LACERATION [None]
  - STOMATITIS [None]
